FAERS Safety Report 17886849 (Version 1)
Quarter: 2020Q2

REPORT INFORMATION
  Report Type: Spontaneous
  Country: NL (occurrence: NL)
  Receive Date: 20200612
  Receipt Date: 20200612
  Transmission Date: 20200714
  Serious: Yes (Other)
  Sender: FDA-Public Use
  Company Number: NL-TEVA-2020-NL-1246990

PATIENT
  Age: 18 Year
  Sex: Female
  Weight: 65 kg

DRUGS (3)
  1. MIDAZOLAM NEUSSPRAY [Concomitant]
  2. TOPIRAMAAT CAPSULE 25MG [Concomitant]
     Dosage: 4 DOSAGE FORMS
     Dates: start: 20150604
  3. FLUTICASON INHALATIEPOEDER 250UG/DO [Suspect]
     Active Substance: FLUTICASONE
     Indication: ASTHMA
     Dosage: HALF DAY AFTER 1 PUFF, BUT UP TO 3X
     Route: 065
     Dates: start: 20150615, end: 20150630

REACTIONS (1)
  - Epilepsy [Recovered/Resolved]

NARRATIVE: CASE EVENT DATE: 20150615
